FAERS Safety Report 11458309 (Version 1)
Quarter: 2015Q3

REPORT INFORMATION
  Report Type: Spontaneous
  Country: CA (occurrence: CA)
  Receive Date: 20150904
  Receipt Date: 20150904
  Transmission Date: 20151125
  Serious: Yes (Other)
  Sender: FDA-Public Use
  Company Number: CA-CELGENE-CAN-2015085346

PATIENT
  Age: 44 Year
  Sex: Female
  Weight: 64.4 kg

DRUGS (1)
  1. OTEZLA [Suspect]
     Active Substance: APREMILAST
     Indication: PSORIASIS
     Dosage: 60 MILLIGRAM
     Route: 048
     Dates: start: 20150526

REACTIONS (2)
  - Swelling face [Unknown]
  - Dry skin [Unknown]

NARRATIVE: CASE EVENT DATE: 201508
